FAERS Safety Report 5828179-5 (Version None)
Quarter: 2008Q3

REPORT INFORMATION
  Report Type: 
  Country: None (occurrence: None)
  Receive Date: 20080731
  Receipt Date: 20080729
  Transmission Date: 20090109
  Serious: Yes (Other)
  Sender: FDA-Public Use
  Company Number: US-BRISTOL-MYERS SQUIBB COMPANY-13909163

PATIENT
  Age: 71 Year
  Sex: Male

DRUGS (10)
  1. PACLITAXEL [Suspect]
     Indication: METASTATIC NEOPLASM
  2. CARBOPLATIN [Suspect]
     Indication: METASTATIC NEOPLASM
  3. MEGESTROL ACETATE [Suspect]
     Indication: METASTATIC NEOPLASM
  4. OXYCODONE HCL [Suspect]
     Indication: PAIN
  5. FLUDROCORTISONE ACETATE [Suspect]
  6. CAPECITABINE [Suspect]
     Indication: METASTATIC NEOPLASM
  7. ENOXAPARIN SODIUM [Suspect]
  8. RADIATION THERAPY [Suspect]
     Indication: METASTATIC NEOPLASM
  9. ESCITALOPRAM [Suspect]
  10. LEVOTHYROXINE SODIUM [Suspect]

REACTIONS (11)
  - ADRENAL INSUFFICIENCY [None]
  - ANDROGEN DEFICIENCY [None]
  - BLOOD CORTISOL DECREASED [None]
  - BLOOD TESTOSTERONE DECREASED [None]
  - BLOOD THYROID STIMULATING HORMONE DECREASED [None]
  - DYSPNOEA EXERTIONAL [None]
  - ERYTHEMA [None]
  - FATIGUE [None]
  - HYPERHIDROSIS [None]
  - NOCTURIA [None]
  - SOMNOLENCE [None]
